FAERS Safety Report 23515944 (Version 1)
Quarter: 2024Q1

REPORT INFORMATION
  Report Type: Spontaneous
  Country: US (occurrence: US)
  Receive Date: 20240213
  Receipt Date: 20240213
  Transmission Date: 20240410
  Serious: No
  Sender: FDA-Public Use
  Company Number: US-ACORDA-ACO_175015_2023

PATIENT
  Age: 76 Year
  Sex: Male
  Weight: 56.689 kg

DRUGS (3)
  1. INBRIJA [Suspect]
     Active Substance: LEVODOPA
     Indication: Product used for unknown indication
     Dosage: UNK
     Dates: start: 20220929
  2. INBRIJA [Suspect]
     Active Substance: LEVODOPA
     Dosage: UNK
     Dates: start: 20220929
  3. INBRIJA [Suspect]
     Active Substance: LEVODOPA
     Dosage: UNK
     Dates: start: 20220929

REACTIONS (7)
  - Incorrect dose administered by device [Unknown]
  - Device issue [Unknown]
  - Device occlusion [Unknown]
  - Wrong technique in device usage process [Unknown]
  - Device issue [Unknown]
  - Therapeutic product effect decreased [Unknown]
  - Drug ineffective [Unknown]

NARRATIVE: CASE EVENT DATE: 20221001
